FAERS Safety Report 13389380 (Version 2)
Quarter: 2017Q4

REPORT INFORMATION
  Report Type: Report from Study
  Country: None (occurrence: US)
  Receive Date: 20170331
  Receipt Date: 20171117
  Transmission Date: 20180320
  Serious: Yes (Other)
  Sender: FDA-Public Use
  Company Number: US-ABBVIE-17K-163-1925530-00

PATIENT
  Age: 41 Year
  Sex: Female

DRUGS (1)
  1. HUMIRA [Suspect]
     Active Substance: ADALIMUMAB
     Indication: RHEUMATOID ARTHRITIS
     Route: 058

REACTIONS (6)
  - Surgical failure [Unknown]
  - Drug ineffective [Unknown]
  - Cough [Unknown]
  - Joint range of motion decreased [Unknown]
  - Fatigue [Unknown]
  - Foot deformity [Unknown]

NARRATIVE: CASE EVENT DATE: 201608
